FAERS Safety Report 24815726 (Version 2)
Quarter: 2025Q1

REPORT INFORMATION
  Report Type: Spontaneous
  Country: US (occurrence: US)
  Receive Date: 20250107
  Receipt Date: 20250207
  Transmission Date: 20250408
  Serious: No
  Sender: PFIZER
  Company Number: US-PFIZER INC-202400333442

PATIENT
  Age: 69 Year
  Sex: Female

DRUGS (21)
  1. TRASTUZUMAB [Suspect]
     Active Substance: TRASTUZUMAB
     Indication: Breast cancer female
     Dates: start: 20200109
  2. TRASTUZUMAB [Suspect]
     Active Substance: TRASTUZUMAB
     Indication: Lymphadenopathy
     Dosage: UNK UNK, WEEKLY
     Dates: start: 202009, end: 202102
  3. TRASTUZUMAB [Suspect]
     Active Substance: TRASTUZUMAB
     Indication: Lymphadenopathy mediastinal
     Dates: start: 20211018
  4. TRASTUZUMAB [Suspect]
     Active Substance: TRASTUZUMAB
     Indication: Lung infiltration
     Dates: start: 20240301
  5. TRASTUZUMAB [Suspect]
     Active Substance: TRASTUZUMAB
     Indication: Malignant pleural effusion
     Dosage: UNK, WEEKLY
     Dates: start: 20240513
  6. TRASTUZUMAB [Suspect]
     Active Substance: TRASTUZUMAB
     Indication: Metastases to lung
     Dates: start: 202410
  7. CARBOPLATIN [Suspect]
     Active Substance: CARBOPLATIN
     Dosage: UNK, WEEKLY
     Dates: start: 202009, end: 2021
  8. DOCETAXEL [Suspect]
     Active Substance: DOCETAXEL
     Dates: start: 20200109
  9. DOCETAXEL [Suspect]
     Active Substance: DOCETAXEL
     Dates: start: 20240301
  10. GEMCITABINE HYDROCHLORIDE [Suspect]
     Active Substance: GEMCITABINE HYDROCHLORIDE
     Indication: Breast cancer female
     Dates: start: 20211018
  11. GEMCITABINE HYDROCHLORIDE [Suspect]
     Active Substance: GEMCITABINE HYDROCHLORIDE
     Indication: Lymphadenopathy
     Dosage: UNK, WEEKLY
     Dates: start: 20240513
  12. GEMCITABINE HYDROCHLORIDE [Suspect]
     Active Substance: GEMCITABINE HYDROCHLORIDE
     Indication: Lymphadenopathy mediastinal
  13. GEMCITABINE HYDROCHLORIDE [Suspect]
     Active Substance: GEMCITABINE HYDROCHLORIDE
     Indication: Lung infiltration
  14. PERTUZUMAB [Suspect]
     Active Substance: PERTUZUMAB
     Indication: Metastases to lung
     Dates: start: 20200109
  15. PERTUZUMAB [Suspect]
     Active Substance: PERTUZUMAB
     Dosage: UNK, EVERY 3 WEEKS
     Dates: start: 202009, end: 202102
  16. PERTUZUMAB [Suspect]
     Active Substance: PERTUZUMAB
     Dates: start: 20210625
  17. PERTUZUMAB [Suspect]
     Active Substance: PERTUZUMAB
     Dates: start: 20240301
  18. ADO-TRASTUZUMAB EMTANSINE [Suspect]
     Active Substance: ADO-TRASTUZUMAB EMTANSINE
     Dates: start: 20210419
  19. FAM-TRASTUZUMAB DERUXTECAN-NXKI [Suspect]
     Active Substance: FAM-TRASTUZUMAB DERUXTECAN-NXKI
     Indication: Chest wall tumour
     Dates: start: 20220106, end: 20220802
  20. FAM-TRASTUZUMAB DERUXTECAN-NXKI [Suspect]
     Active Substance: FAM-TRASTUZUMAB DERUXTECAN-NXKI
     Dates: start: 20230308, end: 20240118
  21. TAXOL [Suspect]
     Active Substance: PACLITAXEL
     Dosage: UNK, WEEKLY
     Dates: start: 202009, end: 2021

REACTIONS (1)
  - Neoplasm progression [Unknown]
